FAERS Safety Report 11459034 (Version 2)
Quarter: 2015Q4

REPORT INFORMATION
  Report Type: Spontaneous
  Country: US (occurrence: US)
  Receive Date: 20150904
  Receipt Date: 20151001
  Transmission Date: 20160304
  Serious: No
  Sender: FDA-Public Use
  Company Number: US-PFIZER INC-2015285543

PATIENT
  Age: 68 Year
  Sex: Female

DRUGS (1)
  1. ALAVERT ALLERGY [Suspect]
     Active Substance: LORATADINE
     Indication: SEASONAL ALLERGY
     Dosage: 10 MG, 1X/DAY
     Dates: start: 201506, end: 20150825

REACTIONS (3)
  - Nasal congestion [Unknown]
  - Drug ineffective [Unknown]
  - Sinus headache [Unknown]

NARRATIVE: CASE EVENT DATE: 2015
